FAERS Safety Report 5227005-5 (Version None)
Quarter: 2007Q1

REPORT INFORMATION
  Report Type: 
  Country: None (occurrence: None)
  Receive Date: 20070201
  Receipt Date: 20070201
  Transmission Date: 20070707
  Serious: Yes (Hospitalization)
  Sender: FDA-Public Use
  Company Number: None

PATIENT
  Age: 8 Year
  Sex: Female
  Weight: 27.5 kg

DRUGS (4)
  1. ONDANSETRON [Suspect]
     Indication: PROCEDURAL NAUSEA
     Dosage: 3MG Q2H X 3 IV
     Route: 042
     Dates: start: 20070118
  2. ONDANSETRON [Suspect]
     Indication: PROCEDURAL VOMITING
     Dosage: 3MG Q2H X 3 IV
     Route: 042
     Dates: start: 20070118
  3. PROPOFOL [Suspect]
     Indication: ANAESTHESIA
     Dosage: IV
     Route: 042
     Dates: start: 20070118
  4. PROPOFOL [Suspect]
     Indication: SURGERY
     Dosage: IV
     Route: 042
     Dates: start: 20070118

REACTIONS (6)
  - AKATHISIA [None]
  - CHOREOATHETOSIS [None]
  - CONFUSIONAL STATE [None]
  - DISORIENTATION [None]
  - DYSTONIA [None]
  - POST PROCEDURAL COMPLICATION [None]
